FAERS Safety Report 6445974-2 (Version None)
Quarter: 2009Q4

REPORT INFORMATION
  Report Type: 
  Country: None (occurrence: None)
  Receive Date: 20091119
  Receipt Date: 20090506
  Transmission Date: 20100525
  Serious: No
  Sender: FDA-Public Use
  Company Number: A0782785A

PATIENT
  Age: 58 Year
  Sex: Male

DRUGS (3)
  1. WELLBUTRIN SR [Suspect]
     Indication: SEASONAL AFFECTIVE DISORDER
     Dosage: 200MG PER DAY
     Route: 048
     Dates: start: 20090407
  2. FISH OIL [Concomitant]
  3. KLONOPIN [Concomitant]

REACTIONS (1)
  - GOUT [None]
